FAERS Safety Report 6127029-X (Version None)
Quarter: 2009Q1

REPORT INFORMATION
  Report Type: 
  Country: None (occurrence: None)
  Receive Date: 20090320
  Receipt Date: 20090130
  Transmission Date: 20090719
  Serious: No
  Sender: FDA-Public Use
  Company Number: US-B.I. PHARMACEUTICALS,INC./RIDGEFIELD-2009-BP-03333BP

PATIENT
  Sex: Female

DRUGS (1)
  1. MIRAPEX [Suspect]
     Indication: PARKINSON'S DISEASE
     Dates: start: 20050601, end: 20081101

REACTIONS (3)
  - EMOTIONAL DISTRESS [None]
  - OBSESSIVE-COMPULSIVE DISORDER [None]
  - PATHOLOGICAL GAMBLING [None]
